FAERS Safety Report 4826189-8 (Version None)
Quarter: 2005Q4

REPORT INFORMATION
  Report Type: 
  Country: None (occurrence: None)
  Receive Date: 20051109
  Receipt Date: 20051103
  Transmission Date: 20060501
  Serious: No
  Sender: FDA-Public Use
  Company Number: TAP2005Q01947

PATIENT
  Age: 80 Year
  Sex: Male
  Weight: 86 kg

DRUGS (2)
  1. LUPRON DEPOT-3 [Suspect]
     Indication: PROSTATE CANCER
     Dosage: 22.5 MG, 1 IN 3 M, INTRAMUSCULAR
     Route: 030
     Dates: start: 20010101
  2. EULEXIN [Suspect]
     Indication: PROSTATE CANCER
     Dosage: PER ORAL
     Route: 048
     Dates: start: 19890101

REACTIONS (8)
  - MYELODYSPLASTIC SYNDROME [None]
  - OCULAR VASCULAR DISORDER [None]
  - OEDEMA [None]
  - OEDEMA PERIPHERAL [None]
  - RASH MACULAR [None]
  - RASH PRURITIC [None]
  - VASCULAR OCCLUSION [None]
  - VISUAL ACUITY REDUCED [None]
